FAERS Safety Report 5631378-9 (Version None)
Quarter: 2008Q1

REPORT INFORMATION
  Report Type: 
  Country: None (occurrence: None)
  Receive Date: 20080212
  Receipt Date: 20080204
  Transmission Date: 20080703
  Serious: Yes (Death)
  Sender: FDA-Public Use
  Company Number: 2008-00867

PATIENT
  Age: 50 Year
  Sex: Female

DRUGS (4)
  1. FORTAMET [Suspect]
  2. ATENOLOL [Suspect]
  3. VENLAFAXINE HCL [Suspect]
  4. VALPROIC ACID [Suspect]

REACTIONS (1)
  - CARDIO-RESPIRATORY ARREST [None]
